FAERS Safety Report 15933273 (Version 1)
Quarter: 2019Q1

REPORT INFORMATION
  Report Type: Spontaneous
  Country: CR (occurrence: CR)
  Receive Date: 20190207
  Receipt Date: 20190207
  Transmission Date: 20190417
  Serious: Yes (Other)
  Sender: FDA-Public Use
  Company Number: CR-BAYER-2019-022367

PATIENT
  Sex: Female

DRUGS (1)
  1. QLAIRA [Suspect]
     Active Substance: DIENOGEST\ESTRADIOL VALERATE
     Indication: CONTRACEPTION
     Dosage: UNK
     Dates: start: 201811

REACTIONS (4)
  - Inappropriate schedule of product administration [None]
  - Respiratory tract infection [None]
  - Product prescribing issue [Recovered/Resolved]
  - Asthma [None]

NARRATIVE: CASE EVENT DATE: 20190117
